FAERS Safety Report 4754470-X (Version None)
Quarter: 2005Q3

REPORT INFORMATION
  Report Type: 
  Country: None (occurrence: None)
  Receive Date: 20050829
  Receipt Date: 20050513
  Transmission Date: 20060218
  Serious: No
  Sender: FDA-Public Use
  Company Number: US-GLAXOSMITHKLINE-A0558511A

PATIENT
  Age: 42 Year
  Sex: Female

DRUGS (4)
  1. ACYCLOVIR [Suspect]
     Dosage: 400MG TWICE PER DAY
     Route: 048
     Dates: start: 20000101
  2. ZOVIRAX [Suspect]
     Dosage: 1000MG VARIABLE DOSE
     Route: 048
     Dates: end: 20000101
  3. ZANTAC [Concomitant]
  4. CELEBREX [Concomitant]

REACTIONS (1)
  - ALOPECIA [None]
